FAERS Safety Report 9806291 (Version 4)
Quarter: 2014Q1

REPORT INFORMATION
  Report Type: Spontaneous
  Country: GB (occurrence: None)
  Receive Date: 20140107
  Receipt Date: 20140219
  Transmission Date: 20141002
  Serious: Yes (Other)
  Sender: FDA-Public Use
  Company Number: VAL_02893_2014

PATIENT
  Age: 86 Year
  Sex: Female

DRUGS (2)
  1. METOPROLOL [Suspect]
     Indication: HYPERTENSION
     Route: 048
  2. BENDROFLUMETHIAZIDE (UNKNOWN) [Concomitant]
     Indication: HYPERTENSION

REACTIONS (3)
  - Cataract [None]
  - Dry eye [None]
  - Cataract operation complication [None]
